FAERS Safety Report 15959741 (Version 1)
Quarter: 2019Q1

REPORT INFORMATION
  Report Type: Spontaneous
  Country: FR (occurrence: FR)
  Receive Date: 20190214
  Receipt Date: 20190214
  Transmission Date: 20190417
  Serious: Yes (Hospitalization)
  Sender: FDA-Public Use
  Company Number: FR-TEVA-2019-FR-1009604

PATIENT
  Age: 80 Year
  Sex: Male
  Weight: 91.5 kg

DRUGS (11)
  1. CALCIDOSE VITAMINE D, POUDRE ORALE EN SACHET-DOSE [Concomitant]
     Active Substance: CALCIUM\CHOLECALCIFEROL
  2. PREVISCAN [Concomitant]
  3. REPAGLINIDE. [Suspect]
     Active Substance: REPAGLINIDE
     Indication: TYPE 2 DIABETES MELLITUS
     Dosage: 6 MILLIGRAM DAILY;
     Route: 048
     Dates: start: 20121031, end: 20121117
  4. EUPRESSYL [Concomitant]
     Active Substance: URAPIDIL
  5. INEXIUM [Concomitant]
     Active Substance: ESOMEPRAZOLE
  6. CORDARONE [Concomitant]
     Active Substance: AMIODARONE HYDROCHLORIDE
  7. LASILIX [Concomitant]
     Active Substance: FUROSEMIDE
  8. CALCIPARINE [Concomitant]
     Active Substance: HEPARIN CALCIUM
  9. BISOCE [Concomitant]
     Active Substance: BISOPROLOL
  10. FINASTERIDE. [Concomitant]
     Active Substance: FINASTERIDE
  11. BICALUTAMIDE. [Concomitant]
     Active Substance: BICALUTAMIDE

REACTIONS (2)
  - Malaise [Recovered/Resolved]
  - Hypoglycaemia [Recovered/Resolved]

NARRATIVE: CASE EVENT DATE: 20121117
